FAERS Safety Report 11717001 (Version 3)
Quarter: 2015Q4

REPORT INFORMATION
  Report Type: Spontaneous
  Country: US (occurrence: US)
  Receive Date: 20151104
  Receipt Date: 20151120
  Transmission Date: 20160304
  Serious: No
  Sender: FDA-Public Use
  Company Number: US-ELI_LILLY_AND_COMPANY-US201108006667

PATIENT
  Age: 79 Year
  Sex: Female

DRUGS (9)
  1. FORTEO [Suspect]
     Active Substance: TERIPARATIDE
     Dosage: 20 UG, QD
     Route: 065
  2. REQUIP [Concomitant]
     Active Substance: ROPINIROLE HYDROCHLORIDE
  3. FORTEO [Suspect]
     Active Substance: TERIPARATIDE
     Indication: OSTEOPOROSIS
     Dosage: 20 UG, QD
     Route: 065
     Dates: start: 201105
  4. CELEXA [Concomitant]
     Active Substance: CITALOPRAM HYDROBROMIDE
  5. SINGULAIR [Concomitant]
     Active Substance: MONTELUKAST SODIUM
  6. FORTEO [Suspect]
     Active Substance: TERIPARATIDE
     Dosage: 20 UG, QD
     Route: 065
  7. OMEPRAZOLE. [Concomitant]
     Active Substance: OMEPRAZOLE
  8. LORTAB [Concomitant]
     Active Substance: ACETAMINOPHEN\HYDROCODONE BITARTRATE
  9. CELEBREX [Concomitant]
     Active Substance: CELECOXIB

REACTIONS (10)
  - Back pain [Unknown]
  - Spinal fracture [Unknown]
  - Hearing impaired [Unknown]
  - Gait disturbance [Unknown]
  - Pain in extremity [Unknown]
  - Ulcer [Unknown]
  - Arthritis [Not Recovered/Not Resolved]
  - Fracture pain [Not Recovered/Not Resolved]
  - Arthralgia [Unknown]
  - Lower limb fracture [Not Recovered/Not Resolved]

NARRATIVE: CASE EVENT DATE: 20120715
